FAERS Safety Report 7093682-X (Version None)
Quarter: 2010Q4

REPORT INFORMATION
  Report Type: 
  Country: None (occurrence: None)
  Receive Date: 20101110
  Receipt Date: 20050613
  Transmission Date: 20110411
  Serious: Yes (Death)
  Sender: FDA-Public Use
  Company Number: NL-ROCHE-739489

PATIENT

DRUGS (1)
  1. XELODA [Suspect]
     Route: 048

REACTIONS (1)
  - DEATH [None]
